FAERS Safety Report 5109188-0 (Version None)
Quarter: 2006Q3

REPORT INFORMATION
  Report Type: 
  Country: None (occurrence: None)
  Receive Date: 20060918
  Receipt Date: 20060829
  Transmission Date: 20061208
  Serious: Yes (Death, Other)
  Sender: FDA-Public Use
  Company Number: US200608001294

PATIENT
  Age: 95 Year
  Sex: Female

DRUGS (2)
  1. FORTEO [Suspect]
     Indication: OSTEOPOROSIS
     Dosage: 20 UG
     Dates: start: 20050601, end: 20060701
  2. FORTEO [Concomitant]

REACTIONS (3)
  - ASPIRATION [None]
  - INTERVERTEBRAL DISC DEGENERATION [None]
  - LOBAR PNEUMONIA [None]
